FAERS Safety Report 17306025 (Version 1)
Quarter: 2020Q1

REPORT INFORMATION
  Report Type: Report from Study
  Country: US (occurrence: US)
  Receive Date: 20200123
  Receipt Date: 20200123
  Transmission Date: 20200409
  Serious: Yes (Death)
  Sender: FDA-Public Use
  Company Number: US-PUMA BIOTECHNOLOGY, LTD.-2019US010281

PATIENT

DRUGS (1)
  1. NERLYNX [Suspect]
     Active Substance: NERATINIB
     Indication: BREAST CANCER FEMALE
     Dosage: 240 MG (6 TABLETS) DAILY
     Route: 048
     Dates: start: 20191005

REACTIONS (2)
  - Death [Fatal]
  - Diarrhoea [Unknown]

NARRATIVE: CASE EVENT DATE: 201910
